FAERS Safety Report 8616186-9 (Version None)
Quarter: 2012Q3

REPORT INFORMATION
  Report Type: 
  Country: None (occurrence: None)
  Receive Date: 20120823
  Receipt Date: 20120817
  Transmission Date: 20120928
  Serious: Yes (Other)
  Sender: FDA-Public Use
  Company Number: US-UCBSA-063265

PATIENT
  Age: 69 Year
  Sex: Female

DRUGS (2)
  1. CIMZIA [Suspect]
     Indication: CROHN'S DISEASE
     Dates: start: 20120101
  2. CIMZIA [Suspect]
     Dosage: INDUCTION DOSES
     Dates: start: 20120719, end: 20120101

REACTIONS (4)
  - DYSPNOEA [None]
  - ABDOMINAL PAIN UPPER [None]
  - VOMITING [None]
  - CHEST PAIN [None]
